FAERS Safety Report 19887333 (Version 1)
Quarter: 2021Q3

REPORT INFORMATION
  Report Type: Spontaneous
  Country: PL (occurrence: PL)
  Receive Date: 20210928
  Receipt Date: 20210928
  Transmission Date: 20211014
  Serious: Yes (Other)
  Sender: FDA-Public Use
  Company Number: PL-TEVA-2021-PL-1958004

PATIENT
  Age: 69 Year
  Sex: Male
  Weight: 70 kg

DRUGS (2)
  1. FINDARTS [Suspect]
     Active Substance: DUTASTERIDE
     Indication: BENIGN PROSTATIC HYPERPLASIA
     Dosage: 0.5 MG
     Route: 048
     Dates: start: 201710, end: 201802
  2. DUTASTERIDE. [Suspect]
     Active Substance: DUTASTERIDE
     Indication: BENIGN PROSTATIC HYPERPLASIA
     Dosage: 0.5 MG
     Route: 048
     Dates: start: 201802, end: 201803

REACTIONS (7)
  - Pruritus [Recovered/Resolved]
  - Eczema [Recovered/Resolved]
  - Abdominal pain upper [Recovered/Resolved]
  - Hepatic pain [Recovered/Resolved]
  - Ejaculation disorder [Recovered/Resolved]
  - Arrhythmia [Recovered/Resolved]
  - Erectile dysfunction [Recovered/Resolved]
